FAERS Safety Report 6007569-4 (Version None)
Quarter: 2008Q4

REPORT INFORMATION
  Report Type: 
  Country: None (occurrence: None)
  Receive Date: 20081217
  Receipt Date: 20080513
  Transmission Date: 20090506
  Serious: No
  Sender: FDA-Public Use
  Company Number: US-ASTRAZENECA-2008UW09780

PATIENT
  Age: 89 Year
  Sex: Female
  Weight: 45.4 kg

DRUGS (5)
  1. CRESTOR [Suspect]
     Route: 048
     Dates: start: 20080416, end: 20080510
  2. PLAVIX [Concomitant]
  3. ASPIRIN [Concomitant]
  4. LOTENSIN [Concomitant]
  5. LASIX [Concomitant]

REACTIONS (1)
  - DIARRHOEA [None]
